FAERS Safety Report 15924339 (Version 2)
Quarter: 2019Q1

REPORT INFORMATION
  Report Type: Spontaneous
  Country: US (occurrence: US)
  Receive Date: 20190205
  Receipt Date: 20190219
  Transmission Date: 20190417
  Serious: No
  Sender: FDA-Public Use
  Company Number: US-ALLERGAN-1828432US

PATIENT
  Age: 75 Year
  Sex: Female
  Weight: 63.5 kg

DRUGS (1)
  1. BOTOX [Suspect]
     Active Substance: ONABOTULINUMTOXINA
     Indication: VOCAL CORD DYSFUNCTION
     Dosage: UNK UNK, SINGLE
     Route: 030
     Dates: start: 2016, end: 2016

REACTIONS (6)
  - Product administered at inappropriate site [Unknown]
  - Off label use [Unknown]
  - Mobility decreased [Unknown]
  - Cough [Unknown]
  - Aphasia [Unknown]
  - Dysphagia [Unknown]
